FAERS Safety Report 15091403 (Version 3)
Quarter: 2018Q3

REPORT INFORMATION
  Report Type: Spontaneous
  Country: BE (occurrence: BE)
  Receive Date: 20180629
  Receipt Date: 20180925
  Transmission Date: 20181010
  Serious: No
  Sender: FDA-Public Use
  Company Number: BE-PFIZER INC-2018257946

PATIENT
  Age: 35 Year
  Sex: Female

DRUGS (6)
  1. XANAX [Suspect]
     Active Substance: ALPRAZOLAM
     Indication: ANXIETY
     Dosage: 0.5 MG, 3X/DAY
     Route: 048
     Dates: end: 20180614
  2. APRANAX [Concomitant]
     Active Substance: NAPROXEN
     Dosage: UNK UNK, 2X/DAY
     Route: 048
     Dates: start: 20180613
  3. SCHERIPROCT [Concomitant]
     Active Substance: DIBUCAINE HYDROCHLORIDE\PREDNISOLONE
     Indication: HAEMORRHOIDS
     Dosage: UNK UNK, 2X/DAY
     Route: 003
  4. FLUCIDERM [Concomitant]
     Dosage: UNK UNK, 2X/DAY
     Route: 003
  5. DAFLON [Concomitant]
     Indication: HAEMORRHOIDS
     Dosage: UNK UNK, 2X/DAY
     Route: 048
     Dates: start: 20180112
  6. MOTILIUM [DOMPERIDONE] [Concomitant]
     Indication: NAUSEA
     Dosage: UNK UNK, 3X/DAY
     Route: 048

REACTIONS (2)
  - Allergic reaction to excipient [Recovered/Resolved]
  - Malaise [Recovered/Resolved]

NARRATIVE: CASE EVENT DATE: 20180613
